FAERS Safety Report 6742803-4 (Version None)
Quarter: 2010Q2

REPORT INFORMATION
  Report Type: 
  Country: None (occurrence: None)
  Receive Date: 20100525
  Receipt Date: 20100512
  Transmission Date: 20101027
  Serious: Yes (Hospitalization)
  Sender: FDA-Public Use
  Company Number: 230444J09USA

PATIENT
  Age: 36 Year
  Sex: Female

DRUGS (8)
  1. REBIF [Suspect]
     Indication: MULTIPLE SCLEROSIS
     Dosage: 8.8 MCG, 3 IN 1 WK, SUBCUTANEOUS; 22 MCG, 3 IN 1 WK, SUBCUTANEOUS; 44 MCG, 3 IN 1 WK, SUBCUTANEOUS;
     Route: 058
     Dates: start: 20090901, end: 20090901
  2. REBIF [Suspect]
     Indication: MULTIPLE SCLEROSIS
     Dosage: 8.8 MCG, 3 IN 1 WK, SUBCUTANEOUS; 22 MCG, 3 IN 1 WK, SUBCUTANEOUS; 44 MCG, 3 IN 1 WK, SUBCUTANEOUS;
     Route: 058
     Dates: start: 20090901, end: 20090914
  3. REBIF [Suspect]
     Indication: MULTIPLE SCLEROSIS
     Dosage: 8.8 MCG, 3 IN 1 WK, SUBCUTANEOUS; 22 MCG, 3 IN 1 WK, SUBCUTANEOUS; 44 MCG, 3 IN 1 WK, SUBCUTANEOUS;
     Route: 058
     Dates: start: 20090101
  4. REBIF [Suspect]
     Indication: MULTIPLE SCLEROSIS
     Dosage: 8.8 MCG, 3 IN 1 WK, SUBCUTANEOUS; 22 MCG, 3 IN 1 WK, SUBCUTANEOUS; 44 MCG, 3 IN 1 WK, SUBCUTANEOUS;
     Route: 058
     Dates: start: 20100423
  5. ADVAIR DISKUS 100/50 [Concomitant]
  6. LEXAPRO [Concomitant]
  7. DEPAKOTE [Concomitant]
  8. CLONIDINE [Concomitant]

REACTIONS (10)
  - CONVULSION [None]
  - DROOLING [None]
  - DYSARTHRIA [None]
  - FEELING HOT [None]
  - HYPOAESTHESIA [None]
  - JOINT SWELLING [None]
  - MULTIPLE SCLEROSIS RELAPSE [None]
  - MUSCLE SPASMS [None]
  - PARAESTHESIA [None]
  - TREMOR [None]
